FAERS Safety Report 23894869 (Version 2)
Quarter: 2024Q3

REPORT INFORMATION
  Report Type: Report from Study
  Country: US (occurrence: US)
  Receive Date: 20240524
  Receipt Date: 20240705
  Transmission Date: 20241017
  Serious: Yes (Other)
  Sender: AUROBINDO
  Company Number: US-AUROBINDO-AUR-APL-2024-024481

PATIENT
  Age: 73 Year
  Sex: Female

DRUGS (2)
  1. IMATINIB [Suspect]
     Active Substance: IMATINIB
     Indication: Chordoma
     Dosage: UNK
     Route: 065
     Dates: start: 2008
  2. DASATINIB [Suspect]
     Active Substance: DASATINIB
     Indication: Chordoma
     Dosage: UNK
     Route: 065
     Dates: start: 2008

REACTIONS (2)
  - Disease progression [Unknown]
  - Drug ineffective [Unknown]
